FAERS Safety Report 12365718 (Version 2)
Quarter: 2016Q2

REPORT INFORMATION
  Report Type: Report from Study
  Country: CA (occurrence: CA)
  Receive Date: 20160513
  Receipt Date: 20160531
  Transmission Date: 20160815
  Serious: Yes (Other)
  Sender: FDA-Public Use
  Company Number: CA-AMGEN-CANSL2015086855

PATIENT
  Age: 87 Year
  Sex: Male

DRUGS (9)
  1. VITAMIN C [Concomitant]
     Active Substance: ASCORBIC ACID
     Dosage: UNK
  2. LUPRON [Concomitant]
     Active Substance: LEUPROLIDE ACETATE
     Indication: PROSTATE CANCER
     Dosage: UNK
  3. VITAMIN D [Concomitant]
     Active Substance: CHOLECALCIFEROL
     Dosage: UNK
  4. TECTA [Concomitant]
     Active Substance: PANTOPRAZOLE MAGNESIUM
     Dosage: UNK
  5. PREDNISONE. [Concomitant]
     Active Substance: PREDNISONE
     Dosage: UNK
  6. ZYTIGA [Concomitant]
     Active Substance: ABIRATERONE ACETATE
     Indication: PROSTATE CANCER
     Dosage: UNK
  7. WARFARIN [Concomitant]
     Active Substance: WARFARIN
     Dosage: UNK
  8. XGEVA [Suspect]
     Active Substance: DENOSUMAB
     Indication: PROSTATE CANCER
     Dosage: 120MG/1.7ML
     Route: 065
     Dates: start: 20141107
  9. SILODOSIN [Concomitant]
     Active Substance: SILODOSIN
     Dosage: UNK
     Route: 065

REACTIONS (6)
  - Tooth fracture [Unknown]
  - Toothache [Not Recovered/Not Resolved]
  - Tooth abscess [Not Recovered/Not Resolved]
  - Gingival abscess [Not Recovered/Not Resolved]
  - Tooth erosion [Unknown]
  - Tooth loss [Unknown]

NARRATIVE: CASE EVENT DATE: 201508
